FAERS Safety Report 6024041-6 (Version None)
Quarter: 2008Q4

REPORT INFORMATION
  Report Type: 
  Country: None (occurrence: None)
  Receive Date: 20081230
  Receipt Date: 20081224
  Transmission Date: 20090506
  Serious: Yes (Hospitalization)
  Sender: FDA-Public Use
  Company Number: JP-ASTRAZENECA-2008AP08573

PATIENT
  Age: 62 Year
  Sex: Female
  Weight: 60.7 kg

DRUGS (12)
  1. NOLVADEX [Suspect]
     Indication: MALIGNANT MELANOMA STAGE IV
     Route: 048
     Dates: start: 20080924, end: 20081021
  2. DACARBAZINE [Suspect]
     Indication: MALIGNANT MELANOMA STAGE IV
     Dates: start: 20030825
  3. DACARBAZINE [Suspect]
     Route: 041
     Dates: start: 20080924, end: 20080926
  4. NIDRAN [Suspect]
     Indication: MALIGNANT MELANOMA STAGE IV
     Route: 041
     Dates: start: 20080924, end: 20080924
  5. PLATOSIN [Suspect]
     Indication: MALIGNANT MELANOMA STAGE IV
     Route: 041
     Dates: start: 20080924, end: 20080924
  6. PLATOSIN [Suspect]
     Route: 041
     Dates: start: 20080925, end: 20080926
  7. FERON [Suspect]
     Indication: MALIGNANT MELANOMA STAGE IV
     Route: 061
     Dates: start: 20080927, end: 20081001
  8. FERON [Suspect]
     Route: 061
     Dates: start: 20081010, end: 20081014
  9. DIART [Concomitant]
     Indication: OEDEMA DUE TO CARDIAC DISEASE
     Route: 048
  10. DIOVAN [Concomitant]
     Indication: HYPERTENSION
     Route: 048
  11. CYANOCOBALAMIN [Concomitant]
     Indication: NEUROPATHY PERIPHERAL
     Route: 048
  12. MAGMITT [Concomitant]
     Indication: CONSTIPATION
     Route: 048

REACTIONS (9)
  - ANOREXIA [None]
  - BLOOD COUNT ABNORMAL [None]
  - CONSTIPATION [None]
  - FATIGUE [None]
  - HAEMOGLOBIN DECREASED [None]
  - HYPOTENSION [None]
  - INJECTION SITE REACTION [None]
  - WEIGHT DECREASED [None]
  - WHITE BLOOD CELL COUNT DECREASED [None]
